FAERS Safety Report 6491709-7 (Version None)
Quarter: 2009Q4

REPORT INFORMATION
  Report Type: 
  Country: None (occurrence: None)
  Receive Date: 20091125
  Receipt Date: 20090429
  Transmission Date: 20100525
  Serious: Yes (Hospitalization)
  Sender: FDA-Public Use
  Company Number: 2009BH007648

PATIENT
  Age: 46 Year
  Sex: Male
  Weight: 103 kg

DRUGS (18)
  1. DIANEAL [Suspect]
     Indication: PERITONEAL DIALYSIS
     Dosage: IP
     Route: 033
     Dates: start: 20081009
  2. FENTANYL [Concomitant]
  3. PREGABALIN [Concomitant]
  4. LOPRESSOR [Concomitant]
  5. NEURONTIN [Concomitant]
  6. COLACE [Concomitant]
  7. ESOMEPRAZOLE MAGNESIUM [Concomitant]
  8. RENAGEL [Concomitant]
  9. ARANESP [Concomitant]
  10. DULCOLAX [Concomitant]
  11. KAYEXALATE [Concomitant]
  12. ATENOLOL [Concomitant]
  13. LISINOPRIL [Concomitant]
  14. METOLAZONE [Concomitant]
  15. CLONIDINE [Concomitant]
  16. MEVACOR [Concomitant]
  17. ASPIRIN [Concomitant]
  18. LASIX [Concomitant]

REACTIONS (2)
  - PERITONITIS [None]
  - WEIGHT INCREASED [None]
